FAERS Safety Report 7210626-8 (Version None)
Quarter: 2010Q4

REPORT INFORMATION
  Report Type: 
  Country: None (occurrence: None)
  Receive Date: 20101126
  Receipt Date: 20100903
  Transmission Date: 20110411
  Serious: No
  Sender: FDA-Public Use
  Company Number: 316026

PATIENT
  Age: 59 Year
  Sex: Male

DRUGS (6)
  1. VICTOZA [Suspect]
     Indication: TYPE 2 DIABETES MELLITUS
     Dosage: 0.6 U, QD, SUBCUTANEOUS
     Route: 058
  2. BENICAR HCT [Concomitant]
  3. BYSTOLIC [Concomitant]
  4. ACTOS [Concomitant]
  5. POTASSIUM CITRATE [Concomitant]
  6. XANAX (POTASSIUM) [Concomitant]

REACTIONS (3)
  - ASTHENIA [None]
  - DISORIENTATION [None]
  - DISTURBANCE IN ATTENTION [None]
